FAERS Safety Report 25991174 (Version 1)
Quarter: 2025Q4

REPORT INFORMATION
  Report Type: Spontaneous
  Country: US (occurrence: US)
  Receive Date: 20251103
  Receipt Date: 20251103
  Transmission Date: 20260118
  Serious: No
  Sender: SANOFI AVENTIS
  Company Number: US-SA-2025SA317624

PATIENT
  Age: 21 Year
  Sex: Male
  Weight: 54.55 kg

DRUGS (2)
  1. DUPIXENT [Suspect]
     Active Substance: DUPILUMAB
     Indication: Asthma
     Dosage: UNK
  2. DUPIXENT [Suspect]
     Active Substance: DUPILUMAB
     Indication: Dermatitis atopic

REACTIONS (5)
  - Herpes zoster [Unknown]
  - Dermatitis atopic [Unknown]
  - Erythema [Recovering/Resolving]
  - Eczema [Unknown]
  - Therapeutic response decreased [Unknown]
